FAERS Safety Report 17755196 (Version 3)
Quarter: 2020Q3

REPORT INFORMATION
  Report Type: Spontaneous
  Country: US (occurrence: US)
  Receive Date: 20200507
  Receipt Date: 20200706
  Transmission Date: 20201102
  Serious: Yes (Hospitalization, Other)
  Sender: FDA-Public Use
  Company Number: US-LEXICON PHARMACEUTICALS, INC-20-1606-00351

PATIENT
  Age: 47 Year
  Sex: Male

DRUGS (1)
  1. XERMELO [Suspect]
     Active Substance: TELOTRISTAT ETHYL
     Indication: NEOPLASM
     Dates: start: 20180216, end: 20200630

REACTIONS (5)
  - Decreased appetite [Unknown]
  - Disease progression [Unknown]
  - Diarrhoea [Unknown]
  - Ascites [Unknown]
  - Adverse drug reaction [Unknown]
